FAERS Safety Report 7949524-0 (Version None)
Quarter: 2011Q4

REPORT INFORMATION
  Report Type: 
  Country: None (occurrence: None)
  Receive Date: 20111130
  Receipt Date: 20111125
  Transmission Date: 20120403
  Serious: Yes (Hospitalization)
  Sender: FDA-Public Use
  Company Number: AU-ALEXION-A201101782

PATIENT
  Sex: Female

DRUGS (6)
  1. SOLIRIS [Suspect]
     Indication: HAEMOLYTIC URAEMIC SYNDROME
     Dosage: 900 MG, QW
     Route: 042
     Dates: start: 20111104
  2. LERCANIDIPINE [Concomitant]
     Dosage: 10 MG, QD
  3. VITAMIN D [Concomitant]
     Dosage: 25 UG, QD
  4. FOLIC ACID [Concomitant]
     Dosage: 5 MG, QD
  5. FUROSEMIDE [Concomitant]
     Dosage: 250 MG, BID
  6. CALCIUM CARBONATE [Concomitant]
     Dosage: UNKL, TID

REACTIONS (1)
  - CARDIOMYOPATHY [None]
